FAERS Safety Report 19990208 (Version 2)
Quarter: 2021Q4

REPORT INFORMATION
  Report Type: Spontaneous
  Country: DK (occurrence: DK)
  Receive Date: 20211025
  Receipt Date: 20211223
  Transmission Date: 20220303
  Serious: Yes (Other)
  Sender: FDA-Public Use
  Company Number: DK-CELLTRION INC.-2021DK014368

PATIENT

DRUGS (5)
  1. RITUXIMAB [Suspect]
     Active Substance: RITUXIMAB
     Indication: Cryoglobulinaemia
     Dosage: 1 G
     Route: 042
  2. RITUXIMAB [Suspect]
     Active Substance: RITUXIMAB
     Dosage: 1 G EVERY 6 MONTHS
  3. RITUXIMAB [Suspect]
     Active Substance: RITUXIMAB
     Dosage: 1 G AT DAY 21 AND DAY 37 POST-INITIAL ADMISSION
  4. PREDNISOLONE [Concomitant]
     Active Substance: PREDNISOLONE
     Route: 048
  5. SULFAMETHOXAZOLE\TRIMETHOPRIM [Concomitant]
     Active Substance: SULFAMETHOXAZOLE\TRIMETHOPRIM
     Indication: Antifungal prophylaxis
     Route: 065

REACTIONS (3)
  - Cryoglobulinaemia [Recovered/Resolved]
  - Rash [Recovered/Resolved]
  - Off label use [Unknown]
